FAERS Safety Report 7828080-1 (Version None)
Quarter: 2011Q4

REPORT INFORMATION
  Report Type: 
  Country: None (occurrence: None)
  Receive Date: 20111018
  Receipt Date: 20111006
  Transmission Date: 20120403
  Serious: Yes (Other)
  Sender: FDA-Public Use
  Company Number: 2011MA013475

PATIENT
  Age: 19 Year
  Sex: Female

DRUGS (2)
  1. VENLAFAXINE HYDROCHLORIDE [Suspect]
     Indication: DEPRESSION
     Dosage: 75 MG; PO
     Route: 048
     Dates: start: 20110729, end: 20110802
  2. CITALOPRAM HYDROBROMIDE [Concomitant]

REACTIONS (6)
  - PHOTOPHOBIA [None]
  - SEDATION [None]
  - HEADACHE [None]
  - PYREXIA [None]
  - RASH GENERALISED [None]
  - ERYTHEMA [None]
